FAERS Safety Report 6687381-3 (Version None)
Quarter: 2010Q2

REPORT INFORMATION
  Report Type: 
  Country: None (occurrence: None)
  Receive Date: 20100415
  Receipt Date: 20100406
  Transmission Date: 20101027
  Serious: Yes (Other)
  Sender: FDA-Public Use
  Company Number: 1000013181

PATIENT
  Age: 68 Year
  Sex: Female

DRUGS (1)
  1. ESCITALOPRAM [Suspect]

REACTIONS (1)
  - AUTOIMMUNE THROMBOCYTOPENIA [None]
